FAERS Safety Report 20940576 (Version 1)
Quarter: 2022Q2

REPORT INFORMATION
  Report Type: Spontaneous
  Country: US (occurrence: US)
  Receive Date: 20220609
  Receipt Date: 20220609
  Transmission Date: 20220720
  Serious: No
  Sender: FDA-Public Use
  Company Number: US-JNJFOC-20220604025

PATIENT
  Age: 9 Decade
  Sex: Female

DRUGS (1)
  1. WOMENS ROGAINE UNSCENTED [Suspect]
     Active Substance: MINOXIDIL
     Indication: Alopecia
     Dosage: THERAPY START DATE, A YEAR OR TWO AGO; DOSE. IT^S HARD TO TELL.
     Route: 061

REACTIONS (1)
  - Application site pruritus [Not Recovered/Not Resolved]
